FAERS Safety Report 5093346-8 (Version None)
Quarter: 2006Q3

REPORT INFORMATION
  Report Type: 
  Country: None (occurrence: None)
  Receive Date: 20060830
  Receipt Date: 20060818
  Transmission Date: 20061208
  Serious: Yes (Other)
  Sender: FDA-Public Use
  Company Number: GB-GILEAD-2006-0010104

PATIENT
  Age: 52 Year
  Sex: Male

DRUGS (6)
  1. VIREAD [Suspect]
     Indication: HIV INFECTION
  2. EFAVIRENZ [Suspect]
     Indication: HIV INFECTION
  3. LAMIVUDINE [Suspect]
     Indication: HIV INFECTION
  4. ISONIAZID [Concomitant]
  5. PYRAZINAMIDE [Concomitant]
  6. RIFAMPICIN [Concomitant]

REACTIONS (6)
  - CONFUSIONAL STATE [None]
  - GRANULOMATOUS LIVER DISEASE [None]
  - HYPERCALCAEMIA [None]
  - IMMUNE RECONSTITUTION SYNDROME [None]
  - JAUNDICE [None]
  - PYREXIA [None]
